FAERS Safety Report 5274739-2 (Version None)
Quarter: 2007Q1

REPORT INFORMATION
  Report Type: 
  Country: None (occurrence: None)
  Receive Date: 20070320
  Receipt Date: 20070313
  Transmission Date: 20070707
  Serious: Yes (Hospitalization)
  Sender: FDA-Public Use
  Company Number: 238230

PATIENT
  Age: 76 Year
  Sex: Female
  Weight: 63.5 kg

DRUGS (5)
  1. RAPTIVA [Suspect]
     Indication: PSORIASIS
     Dosage: 0.6 ML, 1/WEEK, SUBCUTANEOUS
     Route: 058
     Dates: start: 20050101
  2. BLOOD PRESSURE MEDICATION NOS (ANTIHYPERTENSIVE NOS) [Concomitant]
  3. CHOLESTEROL LOWERING DRUG (CHOLESTEROL LOWERING DRUG NOS) [Concomitant]
  4. CENTRUM SILVER (MINERALS NOS, MULTIVITAMINS NOS) [Concomitant]
  5. ASPIRIN [Concomitant]

REACTIONS (1)
  - DIVERTICULITIS [None]
